FAERS Safety Report 23602374 (Version 1)
Quarter: 2024Q1

REPORT INFORMATION
  Report Type: Spontaneous
  Country: US (occurrence: US)
  Receive Date: 20240306
  Receipt Date: 20240306
  Transmission Date: 20240409
  Serious: No
  Sender: FDA-Public Use
  Company Number: US-PFIZER INC-202400056890

PATIENT
  Age: 9 Year
  Sex: Male

DRUGS (1)
  1. OXBRYTA [Suspect]
     Active Substance: VOXELOTOR
     Dosage: 3 TABLETS FOR ORAL SUSPENSION ONCE DAILY, ORALLY
     Route: 048

REACTIONS (1)
  - Abdominal discomfort [Unknown]
